FAERS Safety Report 6247454-6 (Version None)
Quarter: 2009Q2

REPORT INFORMATION
  Report Type: 
  Country: None (occurrence: None)
  Receive Date: 20090626
  Receipt Date: 20090622
  Transmission Date: 20091009
  Serious: Yes (Hospitalization)
  Sender: FDA-Public Use
  Company Number: US-GENENTECH-285498

PATIENT
  Sex: Male
  Weight: 82.6 kg

DRUGS (3)
  1. RITUXIMAB [Suspect]
     Indication: MANTLE CELL LYMPHOMA
     Dosage: 375 MG/M2, DAYS 1+15/Q28D
     Route: 042
     Dates: start: 20090120
  2. VELCADE [Suspect]
     Indication: MANTLE CELL LYMPHOMA
     Dosage: 1.3 MG/M2, DAYS 1+15/Q28D
     Route: 042
     Dates: start: 20090120
  3. GEMCITABINE [Suspect]
     Indication: MANTLE CELL LYMPHOMA
     Dosage: 750 MG/M2, DAYS 1+15/Q28D
     Route: 042
     Dates: start: 20090120

REACTIONS (1)
  - FEBRILE NEUTROPENIA [None]
